FAERS Safety Report 6595957-7 (Version None)
Quarter: 2010Q1

REPORT INFORMATION
  Report Type: 
  Country: None (occurrence: None)
  Receive Date: 20100216
  Receipt Date: 20100205
  Transmission Date: 20100710
  Serious: Yes (Hospitalization)
  Sender: FDA-Public Use
  Company Number: DSA_42573_2010

PATIENT
  Sex: Female

DRUGS (7)
  1. XENAZINE [Suspect]
     Indication: DRUG USE FOR UNKNOWN INDICATION
     Dosage: 25 MG QID ORAL
     Route: 048
  2. COUMADIN [Concomitant]
  3. CYMBALTA [Concomitant]
  4. FLAREX [Concomitant]
  5. CALCIUM [Concomitant]
  6. METOPROLOL TARTRATE [Concomitant]
  7. MULTI-VITAMINS [Concomitant]

REACTIONS (3)
  - GASTRIC HAEMORRHAGE [None]
  - MUSCULAR WEAKNESS [None]
  - MUSCULOSKELETAL STIFFNESS [None]
